FAERS Safety Report 5401198-9 (Version None)
Quarter: 2007Q3

REPORT INFORMATION
  Report Type: 
  Country: None (occurrence: None)
  Receive Date: 20070731
  Receipt Date: 20070722
  Transmission Date: 20080115
  Serious: Yes (Hospitalization)
  Sender: FDA-Public Use
  Company Number: US-AMGEN-US235506

PATIENT
  Sex: Male

DRUGS (2)
  1. ENBREL [Suspect]
     Route: 058
     Dates: start: 20050924
  2. METHOTREXATE SODIUM [Concomitant]
     Route: 048
     Dates: start: 19900101

REACTIONS (7)
  - ANAEMIA [None]
  - ARTHRALGIA [None]
  - COUGH [None]
  - JOINT SWELLING [None]
  - RED BLOOD CELL SEDIMENTATION RATE INCREASED [None]
  - RHINORRHOEA [None]
  - TUBERCULOSIS [None]
